FAERS Safety Report 11684143 (Version 1)
Quarter: 2015Q4

REPORT INFORMATION
  Report Type: Report from Study
  Country: US (occurrence: US)
  Receive Date: 20151029
  Receipt Date: 20151029
  Transmission Date: 20160304
  Serious: Yes (Hospitalization, Other)
  Sender: FDA-Public Use
  Company Number: US-GILEAD-2015-0179107

PATIENT
  Age: 4 Year
  Sex: Male

DRUGS (2)
  1. AZTREONAM LYSINE [Suspect]
     Active Substance: AZTREONAM LYSINE
     Indication: CYSTIC FIBROSIS
     Dosage: 75 MG, 28 DAYS ON, OFF
     Route: 055
  2. TOBI [Concomitant]
     Active Substance: TOBRAMYCIN

REACTIONS (2)
  - Off label use [Unknown]
  - Pseudomonas infection [Unknown]
